FAERS Safety Report 11441806 (Version 1)
Quarter: 2015Q3

REPORT INFORMATION
  Report Type: Spontaneous
  Country: US (occurrence: US)
  Receive Date: 20150901
  Receipt Date: 20150901
  Transmission Date: 20151125
  Serious: Yes (Life-Threatening, Other)
  Sender: FDA-Public Use
  Company Number: US-MYLANLABS-2014M1008607

PATIENT
  Age: 52 Year
  Sex: Female

DRUGS (2)
  1. ISOSULFAN BLUE. [Suspect]
     Active Substance: ISOSULFAN BLUE
     Dosage: UNK
     Dates: start: 20141009, end: 20141009
  2. KEFZOL [Suspect]
     Active Substance: CEFAZOLIN SODIUM
     Dosage: UNK
     Dates: start: 20141009, end: 20141009

REACTIONS (1)
  - Anaphylactic reaction [Not Recovered/Not Resolved]

NARRATIVE: CASE EVENT DATE: 20141009
